FAERS Safety Report 6410065-3 (Version None)
Quarter: 2009Q4

REPORT INFORMATION
  Report Type: 
  Country: None (occurrence: None)
  Receive Date: 20091022
  Receipt Date: 20091014
  Transmission Date: 20100525
  Serious: Yes (Death, Other)
  Sender: FDA-Public Use
  Company Number: GB-BAXTER-2009BH016099

PATIENT
  Age: 52 Year
  Sex: Female

DRUGS (13)
  1. CYCLOPHOSPHAMIDE [Suspect]
     Indication: INFLAMMATORY CARCINOMA OF THE BREAST
     Route: 065
  2. CLOZARIL [Suspect]
     Indication: SCHIZOPHRENIA
     Route: 048
     Dates: start: 20030909, end: 20060828
  3. CLOZARIL [Suspect]
     Route: 065
     Dates: start: 20061009
  4. TAXOTERE [Suspect]
     Indication: INFLAMMATORY CARCINOMA OF THE BREAST
     Route: 065
  5. EPIRUBICIN HYDROCHLORIDE [Suspect]
     Indication: INFLAMMATORY CARCINOMA OF THE BREAST
     Route: 065
  6. RADIOTHERAPY [Suspect]
     Indication: INFLAMMATORY CARCINOMA OF THE BREAST
     Route: 065
  7. CHEMOTHERAPY NOS [Suspect]
     Indication: INFLAMMATORY CARCINOMA OF THE BREAST
     Route: 065
  8. AMITRIPTYLINE [Concomitant]
     Indication: DEPRESSION
     Route: 048
  9. ASACOL [Concomitant]
     Indication: GASTROINTESTINAL DISORDER
     Route: 048
  10. CLONAZEPAM [Concomitant]
     Indication: ANXIETY
     Route: 048
  11. ESCITALOPRAM [Concomitant]
     Indication: DEPRESSION
     Route: 048
  12. EZETIMIBE [Concomitant]
     Indication: HYPERCHOLESTEROLAEMIA
     Route: 048
  13. METFORMIN [Concomitant]
     Indication: DIABETES MELLITUS
     Route: 048

REACTIONS (9)
  - BREAST CANCER [None]
  - CIRCULATORY COLLAPSE [None]
  - DIABETES MELLITUS [None]
  - HYPOGLYCAEMIA [None]
  - LYMPHOCYTE COUNT DECREASED [None]
  - MASTECTOMY [None]
  - PNEUMONIA [None]
  - TREATMENT NONCOMPLIANCE [None]
  - WHITE BLOOD CELL COUNT DECREASED [None]
